FAERS Safety Report 23863314 (Version 3)
Quarter: 2024Q2

REPORT INFORMATION
  Report Type: Report from Study
  Country: JP (occurrence: JP)
  Receive Date: 20240516
  Receipt Date: 20240619
  Transmission Date: 20240716
  Serious: Yes (Life-Threatening)
  Sender: FDA-Public Use
  Company Number: JP-BAUSCH-BL-2024-000454

PATIENT
  Age: 52 Year
  Sex: Male

DRUGS (4)
  1. TETRABENAZINE [Suspect]
     Active Substance: TETRABENAZINE
     Indication: Huntington^s disease
     Dosage: 6 TABLETS/DAY IN 3 DIVIDED DOSES
     Route: 048
     Dates: start: 20230831, end: 2023
  2. TETRABENAZINE [Suspect]
     Active Substance: TETRABENAZINE
     Dosage: 6 TABLETS/DAY IN 3 DIVIDED DOSES
     Route: 048
     Dates: start: 2023, end: 20231228
  3. TETRABENAZINE [Suspect]
     Active Substance: TETRABENAZINE
     Dosage: REDUCED TO 1 TABLET/DAY
     Route: 048
     Dates: start: 20231229, end: 20240116
  4. TETRABENAZINE [Suspect]
     Active Substance: TETRABENAZINE
     Dosage: 6 TABLETS/DAY
     Route: 048
     Dates: start: 20240117

REACTIONS (1)
  - Pneumonia aspiration [Recovering/Resolving]

NARRATIVE: CASE EVENT DATE: 20231205
